FAERS Safety Report 7097760-0 (Version None)
Quarter: 2010Q4

REPORT INFORMATION
  Report Type: 
  Country: None (occurrence: None)
  Receive Date: 20101103
  Receipt Date: 20101025
  Transmission Date: 20110411
  Serious: Yes (Hospitalization, Other)
  Sender: FDA-Public Use
  Company Number: 2010US003313

PATIENT
  Age: 27 Year
  Sex: Female

DRUGS (12)
  1. PROGRAF [Suspect]
     Indication: LUNG TRANSPLANT
     Dosage: 4 MG, UID/QD, ORAL
     Route: 048
     Dates: start: 20080204
  2. PREDNISONE [Concomitant]
  3. ADVAIR DISKUS 100/50 [Concomitant]
  4. ALBUTEROL [Concomitant]
  5. CREON (LIPASE) [Concomitant]
  6. NEXIUM IV [Concomitant]
  7. INSULIN [Concomitant]
  8. HYDRALAZINE [Concomitant]
  9. LORAZEPAM [Concomitant]
  10. CELLCEPT (MYCOPHENOLATE MOFETIL) [Concomitant]
  11. NIFEDIPINE [Concomitant]
  12. MIRALAX [Concomitant]

REACTIONS (12)
  - ECZEMA [None]
  - HERPES ZOSTER [None]
  - HUMAN HERPESVIRUS 7 INFECTION [None]
  - LUNG INFECTION PSEUDOMONAL [None]
  - LUNG TRANSPLANT REJECTION [None]
  - NEPHROLITHIASIS [None]
  - ORGANISING PNEUMONIA [None]
  - OSTEONECROSIS [None]
  - PNEUMONITIS [None]
  - RESPIRATORY TRACT INFECTION BACTERIAL [None]
  - STAPHYLOCOCCUS TEST POSITIVE [None]
  - URINARY TRACT INFECTION PSEUDOMONAL [None]
